FAERS Safety Report 8120776-X (Version None)
Quarter: 2012Q1

REPORT INFORMATION
  Report Type: 
  Country: None (occurrence: None)
  Receive Date: 20120207
  Receipt Date: 20120131
  Transmission Date: 20120608
  Serious: Yes (Life-Threatening, Other)
  Sender: FDA-Public Use
  Company Number: US-BAYER-2011-032082

PATIENT
  Age: 31 Year
  Sex: Female
  Weight: 58.957 kg

DRUGS (1)
  1. YAZ [Suspect]
     Indication: PRODUCT USED FOR UNKNOWN INDICATION
     Dosage: UNK, QD
     Route: 048
     Dates: start: 20071101, end: 20100101

REACTIONS (8)
  - PULMONARY EMBOLISM [None]
  - CEREBROVASCULAR ACCIDENT [None]
  - ANHEDONIA [None]
  - ANXIETY [None]
  - INJURY [None]
  - LOSS OF CONSCIOUSNESS [None]
  - PAIN [None]
  - HYPOAESTHESIA [None]
